FAERS Safety Report 5372569-4 (Version None)
Quarter: 2007Q2

REPORT INFORMATION
  Report Type: 
  Country: None (occurrence: None)
  Receive Date: 20070626
  Receipt Date: 20070614
  Transmission Date: 20071010
  Serious: Yes (Hospitalization)
  Sender: FDA-Public Use
  Company Number: T200700653

PATIENT
  Age: 50 Year
  Sex: Female

DRUGS (1)
  1. OPTIRAY 160 [Suspect]
     Indication: COMPUTERISED TOMOGRAM
     Dosage: 100 ML, SINGLE, INTRAVENOUS
     Route: 042
     Dates: start: 20070604, end: 20070604

REACTIONS (11)
  - ANAPHYLACTOID REACTION [None]
  - ANXIETY [None]
  - DYSPNOEA [None]
  - ERYTHEMA [None]
  - EYELID OEDEMA [None]
  - HYPERVENTILATION [None]
  - LACRIMATION INCREASED [None]
  - LARYNGEAL OEDEMA [None]
  - MUSCULOSKELETAL STIFFNESS [None]
  - NASAL DISCOMFORT [None]
  - URTICARIA [None]
